FAERS Safety Report 18869120 (Version 2)
Quarter: 2021Q1

REPORT INFORMATION
  Report Type: Spontaneous
  Country: ES (occurrence: ES)
  Receive Date: 20210209
  Receipt Date: 20210212
  Transmission Date: 20210420
  Serious: Yes (Hospitalization, Other)
  Sender: FDA-Public Use
  Company Number: ES-TEVA-2021-ES-1876704

PATIENT

DRUGS (1)
  1. FLUDARABINA TEVA 25 MG/ML CONCENTRADO PARA SOLUCION PARA PERFUSION O I [Suspect]
     Active Substance: FLUDARABINE PHOSPHATE
     Route: 040

REACTIONS (1)
  - Febrile neutropenia [Recovered/Resolved]

NARRATIVE: CASE EVENT DATE: 20210123
